FAERS Safety Report 4695589-1 (Version None)
Quarter: 2005Q2

REPORT INFORMATION
  Report Type: 
  Country: None (occurrence: None)
  Receive Date: 20050524
  Receipt Date: 20050518
  Transmission Date: 20051028
  Serious: Yes (Hospitalization)
  Sender: FDA-Public Use
  Company Number: 2005SE02965

PATIENT
  Sex: Male

DRUGS (2)
  1. BLOPRESS TABLETS 8 [Suspect]
     Indication: HYPERTENSION
     Route: 048
     Dates: end: 20050428
  2. COMELIAN [Concomitant]
     Route: 048
     Dates: end: 20050428

REACTIONS (1)
  - INTERSTITIAL LUNG DISEASE [None]
